FAERS Safety Report 13905116 (Version 2)
Quarter: 2017Q3

REPORT INFORMATION
  Report Type: Spontaneous
  Country: FR (occurrence: FR)
  Receive Date: 20170825
  Receipt Date: 20170905
  Transmission Date: 20171127
  Serious: Yes (Other)
  Sender: FDA-Public Use
  Company Number: FR-BAYER-2017-158716

PATIENT
  Age: 30 Year
  Sex: Female

DRUGS (1)
  1. MIRENA [Suspect]
     Active Substance: LEVONORGESTREL
     Indication: CHEMICAL CONTRACEPTION
     Dosage: 20 MCG/24HR, CONT
     Route: 015
     Dates: start: 20160909

REACTIONS (10)
  - Anxiety [Unknown]
  - Vertigo [Unknown]
  - Emotional disorder [Unknown]
  - Fatigue [Unknown]
  - Vaginal haemorrhage [Unknown]
  - Dyspareunia [Unknown]
  - Pelvic pain [Unknown]
  - Vaginal infection [Unknown]
  - Nausea [Unknown]
  - Negative thoughts [Unknown]

NARRATIVE: CASE EVENT DATE: 201702
